FAERS Safety Report 7048387-8 (Version None)
Quarter: 2010Q4

REPORT INFORMATION
  Report Type: 
  Country: None (occurrence: None)
  Receive Date: 20101015
  Receipt Date: 20101015
  Transmission Date: 20110411
  Serious: Yes (Other)
  Sender: FDA-Public Use
  Company Number: None

PATIENT
  Age: 5 Year
  Sex: Female
  Weight: 20.4 kg

DRUGS (2)
  1. GAMMAGARD LIQUID [Suspect]
     Indication: HYPOCOMPLEMENTAEMIA
     Dosage: 25 G EVERY 3 WEEKS IV
     Route: 042
     Dates: start: 20090923, end: 20100929
  2. GAMMAGARD LIQUID [Suspect]
     Indication: OEDEMA
     Dosage: 25 G EVERY 3 WEEKS IV
     Route: 042
     Dates: start: 20090923, end: 20100929

REACTIONS (2)
  - INFUSION RELATED REACTION [None]
  - URTICARIA [None]
